FAERS Safety Report 11985410 (Version 2)
Quarter: 2016Q1

REPORT INFORMATION
  Report Type: Spontaneous
  Country: US (occurrence: US)
  Receive Date: 20160201
  Receipt Date: 20160224
  Transmission Date: 20160526
  Serious: Yes (Disabling, Other)
  Sender: FDA-Public Use
  Company Number: GXBR2016US000604

PATIENT

DRUGS (1)
  1. FLUOXETINE [Suspect]
     Active Substance: FLUOXETINE HYDROCHLORIDE
     Indication: DEPRESSION
     Dosage: UNK DF, UNK
     Route: 065

REACTIONS (4)
  - Depression [Recovering/Resolving]
  - Tension [Recovering/Resolving]
  - Stress [Recovering/Resolving]
  - Depression suicidal [Recovering/Resolving]
